FAERS Safety Report 9173213 (Version 1)
Quarter: 2013Q1

REPORT INFORMATION
  Report Type: Report from Study
  Country: CA (occurrence: CA)
  Receive Date: 20130320
  Receipt Date: 20130320
  Transmission Date: 20140127
  Serious: Yes (Other)
  Sender: FDA-Public Use
  Company Number: CA-JNJFOC-20130303813

PATIENT
  Age: 50 Year
  Sex: Female
  Weight: 81.6 kg

DRUGS (4)
  1. REMICADE [Suspect]
     Indication: RHEUMATOID ARTHRITIS
     Route: 042
     Dates: start: 20120518
  2. PERCOCET [Concomitant]
     Dosage: 1-1.5 TABLETS DAILY
     Route: 065
  3. FOLIC ACID [Concomitant]
     Dosage: 1 TAB DAILY
     Route: 048
  4. METHOTREXATE [Concomitant]
     Dosage: PER ORAL WEEKLY.
     Route: 048

REACTIONS (1)
  - Arthropathy [Not Recovered/Not Resolved]
